FAERS Safety Report 10389605 (Version 2)
Quarter: 2014Q4

REPORT INFORMATION
  Report Type: Spontaneous
  Country: US (occurrence: None)
  Receive Date: 20140813
  Receipt Date: 20141210
  Transmission Date: 20150528
  Serious: Yes (Hospitalization)
  Sender: FDA-Public Use
  Company Number: A1084469A

PATIENT
  Age: 74 Year
  Sex: Male

DRUGS (1)
  1. CITRUCEL [Suspect]
     Active Substance: METHYLCELLULOSE (4000 MPA.S)
     Route: 048

REACTIONS (3)
  - Chest pain [None]
  - Product quality issue [None]
  - Product physical issue [None]

NARRATIVE: CASE EVENT DATE: 20140807
